FAERS Safety Report 7371106-2 (Version None)
Quarter: 2011Q1

REPORT INFORMATION
  Report Type: 
  Country: None (occurrence: None)
  Receive Date: 20110324
  Receipt Date: 20100908
  Transmission Date: 20110831
  Serious: Yes (Hospitalization)
  Sender: FDA-Public Use
  Company Number: US-BAYER-201028185NA

PATIENT
  Sex: Female
  Weight: 61.224 kg

DRUGS (9)
  1. KEFZOL [Concomitant]
     Indication: ABDOMINAL PAIN UPPER
     Dosage: UNK
     Dates: start: 20070101
  2. UNCODEABLE ^UNCLASSIFIABLE^ [Concomitant]
     Indication: ABDOMINAL PAIN UPPER
     Dosage: UNK
     Dates: start: 20070101
  3. UNCODEABLE ^UNCLASSIFIABLE^ [Concomitant]
     Indication: MIGRAINE
  4. YASMIN [Suspect]
     Indication: CONTRACEPTION
     Dosage: UNK UNK, QD
     Route: 048
     Dates: start: 20060701, end: 20091101
  5. ANTIBIOTICS [Concomitant]
     Indication: GASTROENTERITIS
     Dosage: UNK
     Dates: start: 20070809
  6. YAZ [Suspect]
     Indication: CONTRACEPTION
     Dosage: UNK
     Dates: start: 20060701, end: 20091101
  7. IBUPROFEN [Concomitant]
  8. OCELLA [Suspect]
     Indication: CONTRACEPTION
     Dosage: UNK UNK, QD
     Route: 048
     Dates: start: 20060701, end: 20091101
  9. ASCORBIC ACID [Concomitant]

REACTIONS (5)
  - BLOOD CHOLESTEROL INCREASED [None]
  - CHOLECYSTITIS INFECTIVE [None]
  - CHOLECYSTITIS CHRONIC [None]
  - GALLBLADDER DISORDER [None]
  - CHOLELITHIASIS [None]
